FAERS Safety Report 23744666 (Version 1)
Quarter: 2024Q2

REPORT INFORMATION
  Report Type: Spontaneous
  Country: GR (occurrence: GR)
  Receive Date: 20240415
  Receipt Date: 20240415
  Transmission Date: 20240716
  Serious: Yes (Other)
  Sender: FDA-Public Use
  Company Number: GR-BAUSCHBL-2024BNL025338

PATIENT
  Age: 50 Year
  Sex: Male

DRUGS (5)
  1. DEXAMETHASONE [Suspect]
     Active Substance: DEXAMETHASONE
     Indication: Herpes ophthalmic
     Dosage: DAILY
     Route: 061
  2. MOXIFLOXACIN [Suspect]
     Active Substance: MOXIFLOXACIN
     Indication: Herpes ophthalmic
     Dosage: EVERY 2 HOURS
     Route: 065
  3. POLYVINYL ALCOHOL\POVIDONE [Suspect]
     Active Substance: POLYVINYL ALCOHOL\POVIDONE
     Indication: Herpes ophthalmic
     Dosage: EVERY HOUR WHILE AWAKE
     Route: 065
  4. CYCLOPENTOLATE [Suspect]
     Active Substance: CYCLOPENTOLATE
     Indication: Herpes ophthalmic
     Dosage: DAILY
     Route: 065
  5. VALACYCLOVIR [Suspect]
     Active Substance: VALACYCLOVIR HYDROCHLORIDE
     Indication: Herpes ophthalmic
     Route: 048

REACTIONS (2)
  - Condition aggravated [Unknown]
  - Viral keratouveitis [Unknown]
